FAERS Safety Report 7353626-X (Version None)
Quarter: 2011Q1

REPORT INFORMATION
  Report Type: 
  Country: None (occurrence: None)
  Receive Date: 20110303
  Receipt Date: 20100301
  Transmission Date: 20110831
  Serious: Yes (Other)
  Sender: FDA-Public Use
  Company Number: US-004115

PATIENT
  Sex: Male

DRUGS (3)
  1. ISOVUE-300 [Suspect]
     Indication: DYSPNOEA
     Dosage: 90ML ONCE INTRAVENOUS (NOT OTHERWISE SPECIFIED)
     Route: 042
     Dates: start: 20100227, end: 20100227
  2. ISOVUE-300 [Suspect]
     Indication: CHEST PAIN
     Dosage: 90ML ONCE INTRAVENOUS (NOT OTHERWISE SPECIFIED)
     Route: 042
     Dates: start: 20100227, end: 20100227
  3. ISOVUE-300 [Suspect]
     Indication: COMPUTERISED TOMOGRAM THORAX
     Dosage: 90ML ONCE INTRAVENOUS (NOT OTHERWISE SPECIFIED)
     Route: 042
     Dates: start: 20100227, end: 20100227

REACTIONS (1)
  - PRESYNCOPE [None]
